FAERS Safety Report 5254321-3 (Version None)
Quarter: 2007Q1

REPORT INFORMATION
  Report Type: 
  Country: None (occurrence: None)
  Receive Date: 20070302
  Receipt Date: 20070221
  Transmission Date: 20070707
  Serious: Yes (Death)
  Sender: FDA-Public Use
  Company Number: HQWYE922209NOV06

PATIENT
  Sex: Male
  Weight: 64 kg

DRUGS (8)
  1. MYLOTARG [Suspect]
     Indication: ACUTE MYELOID LEUKAEMIA RECURRENT
     Route: 041
     Dates: start: 20061013, end: 20061013
  2. VOLTAREN-XR [Concomitant]
     Indication: PYREXIA
     Route: 048
     Dates: end: 20061021
  3. POLYMYXIN B SULFATE [Concomitant]
     Indication: PROPHYLAXIS
     Dosage: 3 MEGAIU EVERY 1 DAY
     Route: 048
     Dates: start: 20061011, end: 20061021
  4. CONIEL [Concomitant]
     Indication: HYPERTENSION
     Route: 048
     Dates: end: 20061021
  5. DIFLUCAN [Concomitant]
     Indication: PROPHYLAXIS
     Route: 048
     Dates: start: 20061011, end: 20061021
  6. URSO [Concomitant]
     Indication: PROPHYLAXIS
     Route: 048
     Dates: start: 20061011, end: 20061021
  7. MORPHINE [Concomitant]
     Indication: PAIN
     Route: 048
     Dates: end: 20061021
  8. GASTER [Concomitant]
     Indication: PROPHYLAXIS
     Route: 048
     Dates: end: 20061021

REACTIONS (2)
  - NEUTROPHIL COUNT DECREASED [None]
  - PLATELET COUNT DECREASED [None]
